FAERS Safety Report 18080410 (Version 2)
Quarter: 2020Q3

REPORT INFORMATION
  Report Type: Report from Study
  Country: FR (occurrence: FR)
  Receive Date: 20200728
  Receipt Date: 20200914
  Transmission Date: 20201103
  Serious: Yes (Hospitalization, Other)
  Sender: FDA-Public Use
  Company Number: FR-BRISTOL-MYERS SQUIBB COMPANY-BMS-2020-058070

PATIENT
  Age: 67 Year
  Sex: Male
  Weight: 83 kg

DRUGS (2)
  1. NIVOLUMAB [Suspect]
     Active Substance: NIVOLUMAB
     Indication: MALIGNANT MELANOMA
     Dosage: 1 MILLIGRAM/KILOGRAM
     Route: 042
     Dates: start: 20170616
  2. YERVOY [Suspect]
     Active Substance: IPILIMUMAB
     Indication: MALIGNANT MELANOMA
     Dosage: 3 MILLIGRAM/KILOGRAM
     Route: 042
     Dates: start: 20170616, end: 20170823

REACTIONS (5)
  - Autoimmune lung disease [Recovered/Resolved]
  - Hepatitis [Recovered/Resolved]
  - Lymphadenopathy mediastinal [Unknown]
  - Autoimmune thyroiditis [Recovered/Resolved with Sequelae]
  - Pruritus [Unknown]

NARRATIVE: CASE EVENT DATE: 20170712
